FAERS Safety Report 10064343 (Version 1)
Quarter: 2014Q2

REPORT INFORMATION
  Report Type: Spontaneous
  Country: DE (occurrence: DE)
  Receive Date: 20140408
  Receipt Date: 20140408
  Transmission Date: 20141212
  Serious: Yes (Death)
  Sender: FDA-Public Use
  Company Number: DE-JNJFOC-20140403174

PATIENT
  Age: 44 Year
  Sex: Female

DRUGS (1)
  1. IMODIUM AKUT [Suspect]
     Indication: DIARRHOEA
     Route: 048
     Dates: start: 1990, end: 2011

REACTIONS (2)
  - Arrhythmia [Fatal]
  - Cardiac failure [Fatal]
